FAERS Safety Report 5454609-7 (Version None)
Quarter: 2007Q3

REPORT INFORMATION
  Report Type: 
  Country: None (occurrence: None)
  Receive Date: 20070917
  Receipt Date: 20070228
  Transmission Date: 20080115
  Serious: Yes (Hospitalization, Other)
  Sender: FDA-Public Use
  Company Number: US-ASTRAZENECA-2006UW11551

PATIENT
  Sex: Female
  Weight: 72.3 kg

DRUGS (3)
  1. SEROQUEL [Suspect]
     Route: 048
  2. ZYPREXA [Suspect]
     Route: 065
  3. RISPERDAL [Suspect]
     Route: 065

REACTIONS (3)
  - CHEST PAIN [None]
  - DIABETES MELLITUS [None]
  - PANCREATITIS [None]
